FAERS Safety Report 12551073 (Version 1)
Quarter: 2016Q3

REPORT INFORMATION
  Report Type: Spontaneous
  Country: BR (occurrence: BR)
  Receive Date: 20160713
  Receipt Date: 20160713
  Transmission Date: 20161109
  Serious: Yes (Hospitalization, Other)
  Sender: FDA-Public Use
  Company Number: BR-AMGEN-BRASP2016089211

PATIENT
  Age: 54 Year
  Sex: Female

DRUGS (1)
  1. ENBREL [Suspect]
     Active Substance: ETANERCEPT
     Indication: PRODUCT USED FOR UNKNOWN INDICATION
     Dosage: (STRENGTH 50 MG)
     Route: 065
     Dates: start: 2014

REACTIONS (3)
  - Decreased immune responsiveness [Unknown]
  - Herpes virus infection [Unknown]
  - Thrombosis [Unknown]

NARRATIVE: CASE EVENT DATE: 201510
